FAERS Safety Report 15844450 (Version 3)
Quarter: 2019Q2

REPORT INFORMATION
  Report Type: Report from Study
  Country: US (occurrence: US)
  Receive Date: 20190118
  Receipt Date: 20190419
  Transmission Date: 20190711
  Serious: Yes (Hospitalization, Other)
  Sender: FDA-Public Use
  Company Number: US-ACTELION-A-NJ2019-185041

PATIENT
  Age: 72 Year
  Sex: Female
  Weight: 67.12 kg

DRUGS (3)
  1. OPSUMIT [Suspect]
     Active Substance: MACITENTAN
     Indication: PULMONARY ARTERIAL HYPERTENSION
     Dosage: 10 MG, QD
     Route: 048
  2. ADCIRCA [Concomitant]
     Active Substance: TADALAFIL
  3. AMLODIPINE [Concomitant]
     Active Substance: AMLODIPINE BESYLATE

REACTIONS (7)
  - Hypotension [Unknown]
  - Hypersensitivity [Unknown]
  - Anaemia [Recovered/Resolved]
  - Blood bilirubin increased [Unknown]
  - Respiratory failure [Recovered/Resolved]
  - Herpes zoster [Unknown]
  - Shock symptom [Unknown]

NARRATIVE: CASE EVENT DATE: 20181228
